FAERS Safety Report 8564717-X (Version None)
Quarter: 2012Q3

REPORT INFORMATION
  Report Type: 
  Country: None (occurrence: None)
  Receive Date: 20120803
  Receipt Date: 20120726
  Transmission Date: 20120928
  Serious: Yes (Hospitalization, Other)
  Sender: FDA-Public Use
  Company Number: BE-ABBOTT-12P-013-0927586-03

PATIENT
  Sex: Female
  Weight: 75 kg

DRUGS (10)
  1. HUMIRA [Suspect]
     Indication: CROHN'S DISEASE
     Route: 058
     Dates: end: 20090701
  2. MOTILIUM [Concomitant]
     Indication: DIARRHOEA
     Dates: start: 20090301
  3. FELDENE [Concomitant]
     Indication: ARTHRALGIA
     Dates: start: 20090101, end: 20090101
  4. LORAZEPAM [Concomitant]
     Indication: INSOMNIA
     Dates: start: 20110101
  5. PANTOPRAZOLE [Concomitant]
     Dates: start: 20091201, end: 20120207
  6. PANTOPRAZOLE [Concomitant]
     Indication: ABDOMINAL PAIN UPPER
     Dates: start: 20090401, end: 20090901
  7. EFFEXOR [Concomitant]
     Indication: INSOMNIA
     Dates: start: 20090703, end: 20090708
  8. PANTOPRAZOLE [Concomitant]
     Dates: start: 20120208, end: 20120218
  9. EFFEXOR [Concomitant]
     Dates: start: 20090801
  10. OMEPRAZOLE [Concomitant]
     Indication: ABDOMINAL PAIN UPPER
     Dates: start: 20080501

REACTIONS (1)
  - CROHN'S DISEASE [None]
